FAERS Safety Report 18964131 (Version 1)
Quarter: 2021Q1

REPORT INFORMATION
  Report Type: Other
  Country: US (occurrence: US)
  Receive Date: 20210303
  Receipt Date: 20210303
  Transmission Date: 20210420
  Serious: Yes (Life-Threatening, Hospitalization)
  Sender: FDA-Public Use
  Company Number: US-FAMILY DOLLAR-2107530

PATIENT
  Age: 17 Year
  Sex: Male

DRUGS (1)
  1. COUGH AND COLD HBP [Suspect]
     Active Substance: CHLORPHENIRAMINE MALEATE\DEXTROMETHORPHAN HYDROBROMIDE

REACTIONS (1)
  - Coma [Recovered/Resolved]
